FAERS Safety Report 7577731 (Version 8)
Quarter: 2015Q4

REPORT INFORMATION
  Report Type: Report from Study
  Country: CA (occurrence: CA)
  Receive Date: 20100909
  Receipt Date: 20151123
  Transmission Date: 20160305
  Serious: Yes (Hospitalization, Other)
  Sender: FDA-Public Use
  Company Number: PHHY2010CA28504

PATIENT
  Age: 70 Year
  Sex: Female

DRUGS (3)
  1. NORVASC [Concomitant]
     Active Substance: AMLODIPINE BESYLATE
     Indication: PRODUCT USED FOR UNKNOWN INDICATION
     Route: 065
  2. SYNTHROID [Concomitant]
     Active Substance: LEVOTHYROXINE SODIUM
     Indication: PRODUCT USED FOR UNKNOWN INDICATION
     Route: 065
  3. SANDOSTATIN LAR DEPOT [Suspect]
     Active Substance: OCTREOTIDE ACETATE
     Indication: NEUROENDOCRINE TUMOUR
     Dosage: 30 MG, QMO
     Route: 030
     Dates: start: 20100326, end: 20100721

REACTIONS (16)
  - Fatigue [Unknown]
  - Intestinal haemorrhage [Unknown]
  - Increased appetite [Unknown]
  - Pain [Unknown]
  - Decreased appetite [Unknown]
  - Weight increased [Unknown]
  - Amnesia [Unknown]
  - Asthenia [Unknown]
  - Cough [Unknown]
  - Oedema peripheral [Unknown]
  - Heart rate increased [Unknown]
  - Blood pressure systolic increased [Unknown]
  - Influenza [Unknown]
  - Dizziness [Unknown]
  - Cardiac failure [Unknown]
  - Lung neoplasm malignant [Unknown]

NARRATIVE: CASE EVENT DATE: 20130716
